FAERS Safety Report 9669849 (Version 2)
Quarter: 2013Q4

REPORT INFORMATION
  Report Type: Report from Study
  Country: JP (occurrence: JP)
  Receive Date: 20131105
  Receipt Date: 20131210
  Transmission Date: 20140711
  Serious: Yes (Other)
  Sender: FDA-Public Use
  Company Number: JP-TAKEDA-2013TJP002293

PATIENT
  Age: 93 Year
  Sex: Male
  Weight: 55 kg

DRUGS (12)
  1. LANSOPRAZOLE [Suspect]
     Indication: PROPHYLAXIS AGAINST GASTROINTESTINAL ULCER
     Dosage: 15 MG, QD
     Route: 048
     Dates: start: 20110401
  2. BAYASPIRIN [Concomitant]
     Indication: THROMBOSIS PROPHYLAXIS
     Dosage: 100 MG, 1 DAYS
     Route: 048
     Dates: start: 20110401
  3. MEVALOTIN [Concomitant]
     Dosage: 5 MG, 1 DAYS
     Route: 048
  4. ALDACTONE A [Concomitant]
     Dosage: 25 MG,1 DAYS
     Route: 048
  5. DIART [Concomitant]
     Indication: CARDIAC FAILURE CHRONIC
     Dosage: 30 MG,1 DAYS
     Route: 048
     Dates: end: 20130628
  6. DIART [Concomitant]
     Dosage: 15 MG, 1 DAYS
     Route: 065
     Dates: start: 20130629, end: 20130710
  7. WARFARIN [Concomitant]
     Dosage: 2 MG, 1 DAYS
     Route: 048
  8. TALION                             /01587402/ [Concomitant]
     Indication: RHINITIS ALLERGIC
     Dosage: 20 MG, UNK
     Route: 048
     Dates: start: 20130304
  9. ADALAT CR [Concomitant]
     Dosage: 40 MG, 1 DAYS
     Route: 048
     Dates: end: 20110919
  10. ADALAT CR [Concomitant]
     Dosage: 20 MG, 1 DAYS
     Route: 048
     Dates: start: 20110920
  11. CIBENOL [Concomitant]
     Dosage: 150 MG, 1 DAYS
     Route: 048
     Dates: end: 20110520
  12. EXFORGE [Concomitant]
     Dosage: UNK
     Route: 048

REACTIONS (2)
  - Hypertension [Recovering/Resolving]
  - Cardiac failure [Recovering/Resolving]
